FAERS Safety Report 7444262-5 (Version None)
Quarter: 2011Q2

REPORT INFORMATION
  Report Type: 
  Country: None (occurrence: None)
  Receive Date: 20110429
  Receipt Date: 20110420
  Transmission Date: 20111010
  Serious: Yes (Death, Other)
  Sender: FDA-Public Use
  Company Number: JP-JNJFOC-20110207433

PATIENT
  Sex: Female

DRUGS (48)
  1. RHEUMATREX [Suspect]
     Route: 048
  2. DEXART [Concomitant]
     Route: 065
  3. ADEFURONIC [Concomitant]
     Indication: PERIARTHRITIS
     Route: 054
  4. FELBINAC [Concomitant]
     Indication: SPINAL OSTEOARTHRITIS
     Route: 061
  5. ELCATONIN [Concomitant]
     Route: 030
  6. CYANOCOBALAMIN [Concomitant]
     Route: 065
  7. DUROTEP MT [Suspect]
     Route: 062
  8. DUROTEP MT [Suspect]
     Route: 062
  9. ADEFURONIC [Concomitant]
     Indication: LUMBAR SPINAL STENOSIS
     Route: 054
  10. ANFLAVATE [Concomitant]
     Indication: LUMBAR SPINAL STENOSIS
     Route: 065
  11. ETIZOLAM [Concomitant]
     Indication: ANXIETY DISORDER
     Route: 048
  12. DUROTEP MT [Suspect]
     Indication: PAIN
     Route: 062
  13. LYRICA [Suspect]
     Indication: PAIN
     Route: 048
  14. ADEFURONIC [Concomitant]
     Indication: RHEUMATOID ARTHRITIS
     Route: 054
  15. SUMILU [Concomitant]
     Indication: PERIARTHRITIS
     Route: 062
  16. SUMILU [Concomitant]
     Indication: RHEUMATOID ARTHRITIS
     Route: 062
  17. NOLPORT [Concomitant]
     Route: 065
  18. DUROTEP MT [Suspect]
     Route: 062
  19. RHEUMATREX [Suspect]
     Indication: RHEUMATOID ARTHRITIS
     Route: 048
  20. LYRICA [Suspect]
     Route: 048
  21. ANFLAVATE [Concomitant]
     Indication: SPINAL OSTEOARTHRITIS
     Route: 065
  22. FELBINAC [Concomitant]
     Route: 062
  23. FELBINAC [Concomitant]
     Route: 062
  24. PRIMPERAN TAB [Concomitant]
     Route: 048
  25. PRORENAL [Concomitant]
     Indication: LUMBAR SPINAL STENOSIS
     Route: 048
  26. LYRICA [Suspect]
     Indication: NEUROPATHY PERIPHERAL
     Route: 048
  27. ADEFURONIC [Concomitant]
     Indication: SPINAL OSTEOARTHRITIS
     Route: 054
  28. ANFLAVATE [Concomitant]
     Indication: PERIARTHRITIS
     Route: 065
  29. ANFLAVATE [Concomitant]
     Indication: RHEUMATOID ARTHRITIS
     Route: 065
  30. CILOSTAZOL [Concomitant]
     Indication: ARTERIOSCLEROSIS OBLITERANS
     Route: 048
  31. FELBINAC [Concomitant]
     Indication: RHEUMATOID ARTHRITIS
     Route: 061
  32. FELBINAC [Concomitant]
     Route: 062
  33. SODIUM HYALURONATE [Concomitant]
     Route: 065
  34. SODIUM HYALURONATE [Concomitant]
     Route: 065
  35. RHEUMATREX [Suspect]
     Route: 048
  36. LOXONIN [Suspect]
     Indication: PAIN
     Route: 065
  37. XYLOCAINE [Concomitant]
     Route: 065
  38. SUMILU [Concomitant]
     Indication: SPINAL OSTEOARTHRITIS
     Route: 062
  39. FELBINAC [Concomitant]
     Indication: PERIARTHRITIS
     Route: 061
  40. FELBINAC [Concomitant]
     Indication: LUMBAR SPINAL STENOSIS
     Route: 061
  41. DUROTEP MT [Suspect]
     Route: 062
  42. DUROTEP MT [Suspect]
     Route: 062
  43. LYRICA [Suspect]
     Route: 048
  44. NOVAMIN [Suspect]
     Indication: PRODUCT USED FOR UNKNOWN INDICATION
     Route: 065
  45. ANTIDIABETIC DRUG [Suspect]
     Indication: PRODUCT USED FOR UNKNOWN INDICATION
     Route: 065
  46. SUMILU [Concomitant]
     Indication: LUMBAR SPINAL STENOSIS
     Route: 062
  47. FELBINAC [Concomitant]
     Route: 062
  48. NOVAMIN [Concomitant]
     Route: 048

REACTIONS (19)
  - SEPSIS [None]
  - SOMNOLENCE [None]
  - NAUSEA [None]
  - INTERSTITIAL LUNG DISEASE [None]
  - CIRCULATORY COLLAPSE [None]
  - SCIATICA [None]
  - ALANINE AMINOTRANSFERASE INCREASED [None]
  - SPEECH DISORDER [None]
  - OXYGEN SATURATION DECREASED [None]
  - MENTAL IMPAIRMENT [None]
  - ALTERED STATE OF CONSCIOUSNESS [None]
  - CONDITION AGGRAVATED [None]
  - RESPIRATION ABNORMAL [None]
  - ABNORMAL BEHAVIOUR [None]
  - BACK PAIN [None]
  - TOXICITY TO VARIOUS AGENTS [None]
  - STAPHYLOCOCCAL INFECTION [None]
  - ASPARTATE AMINOTRANSFERASE INCREASED [None]
  - HEADACHE [None]
